FAERS Safety Report 5633917-0 (Version None)
Quarter: 2008Q1

REPORT INFORMATION
  Report Type: 
  Country: None (occurrence: None)
  Receive Date: 20080221
  Receipt Date: 20080125
  Transmission Date: 20080703
  Serious: No
  Sender: FDA-Public Use
  Company Number: US-BOEHRINGER INGELHEIM GMBH, GERMANY-2007-BP-25134BP

PATIENT
  Sex: Male

DRUGS (12)
  1. SPIRIVA [Suspect]
     Indication: CHRONIC OBSTRUCTIVE PULMONARY DISEASE
     Route: 055
     Dates: start: 20040801, end: 20041008
  2. SPIRIVA [Suspect]
     Indication: EMPHYSEMA
  3. SPIRIVA [Suspect]
     Indication: DYSPNOEA
  4. ATROVENT HFA [Suspect]
     Route: 055
  5. ALBUTEROL SULFATE [Suspect]
  6. RHINOCORT [Concomitant]
     Route: 045
  7. ZETIA [Concomitant]
  8. PULMICORT [Concomitant]
  9. PLAVIX [Concomitant]
  10. ATACAND [Concomitant]
  11. CRESTOR [Concomitant]
  12. CQ-10 [Concomitant]

REACTIONS (2)
  - BACK PAIN [None]
  - MYALGIA [None]
